FAERS Safety Report 8454950 (Version 2)
Quarter: 2012Q4

REPORT INFORMATION
  Report Type: 
  Country: BR (occurrence: BR)
  Receive Date: 20120312
  Receipt Date: 20121015
  Transmission Date: 20130627
  Serious: Yes (Hospitalization)
  Sender: FDA-Public Use
  Company Number: BR-ASTRAZENECA-2012SE15763

PATIENT
  Age: 88 Year
  Sex: Female
  Weight: 69 kg

DRUGS (2)
  1. SYMBICORT TURBUHALER [Suspect]
     Indication: BRONCHITIS
     Dosage: 320/90 MCG Two times a day
     Route: 055
     Dates: start: 2010
  2. LOSARTAN [Concomitant]
     Indication: HYPERTENSION
     Route: 048

REACTIONS (8)
  - Tibia fracture [Recovered/Resolved]
  - Fall [Unknown]
  - Osteoarthritis [Not Recovered/Not Resolved]
  - Thrombosis [Recovered/Resolved]
  - Oedema peripheral [Recovered/Resolved]
  - Excoriation [Not Recovered/Not Resolved]
  - Lung disorder [Not Recovered/Not Resolved]
  - Cartilage injury [Not Recovered/Not Resolved]
